FAERS Safety Report 4625294-9 (Version None)
Quarter: 2005Q1

REPORT INFORMATION
  Report Type: 
  Country: None (occurrence: None)
  Receive Date: 20050107
  Receipt Date: 20041008
  Transmission Date: 20050727
  Serious: No
  Sender: FDA-Public Use
  Company Number: 235085K04USA

PATIENT
  Age: 51 Year
  Sex: Female

DRUGS (4)
  1. REBIF (INTERFERON BETA) [Suspect]
     Indication: MULTIPLE SCLEROSIS
     Dosage: 44 MCG, 3 IN 1 WEEKS, SUBCUTANEOUS
     Route: 058
     Dates: start: 20020207
  2. BENICAR [Concomitant]
  3. CELEBREX [Concomitant]
  4. NEURONTIN [Concomitant]

REACTIONS (12)
  - ABDOMINAL PAIN [None]
  - ABDOMINAL PAIN LOWER [None]
  - CELLULITIS [None]
  - CONTUSION [None]
  - ERYTHEMA [None]
  - FLUSHING [None]
  - INJECTION SITE ERYTHEMA [None]
  - INJECTION SITE REACTION [None]
  - OVARIAN CYST [None]
  - PURPURA [None]
  - RASH ERYTHEMATOUS [None]
  - SKIN WARM [None]
